FAERS Safety Report 4680277-8 (Version None)
Quarter: 2005Q2

REPORT INFORMATION
  Report Type: 
  Country: None (occurrence: None)
  Receive Date: 20050601
  Receipt Date: 20050517
  Transmission Date: 20051028
  Serious: Yes (Death, Life-Threatening)
  Sender: FDA-Public Use
  Company Number: 2004-00510

PATIENT
  Age: 76 Year
  Sex: Male
  Weight: 64 kg

DRUGS (16)
  1. VELCADE [Suspect]
     Indication: MULTIPLE MYELOMA
     Dosage: 1.75 MG, 2/WEEK, INTRAVENOUS
     Route: 042
     Dates: start: 20040906, end: 20040910
  2. DEXAMETHASONE [Suspect]
     Indication: MULTIPLE MYELOMA
     Dosage: 1.00 MG, 2/WEEK, INTRAVENOUS
     Route: 042
     Dates: start: 20040906
  3. CYCLOPHOSPHAMIDE [Suspect]
     Indication: MULTIPLE MYELOMA
     Dosage: 50.00 MG, 2/WEEK, INTRAVENOUS
     Route: 042
     Dates: start: 20040906
  4. KARVEA (IRBESARTAN) [Concomitant]
  5. CARVEDILOL [Concomitant]
  6. CORVATON (MOLSIDOMINE) [Concomitant]
  7. ISMO [Concomitant]
  8. LEVOTHYROXINE SODIUM [Concomitant]
  9. TROMCARDIN (MAGNESIUM ASPARTATE, ASPARTATE POTASSIUM) [Concomitant]
  10. IDEOS (COLECALCIFEROL, CALCIUM CARBONATE) [Concomitant]
  11. ASPIRIN [Concomitant]
  12. UNAT (TORASEMIDE) [Concomitant]
  13. KALINOR (POTASSIUM CHLORIDE) [Concomitant]
  14. BONDRONAT (IBANDRONIC ACID) [Concomitant]
  15. CLORAZEPATE DIPOTASSIUM [Concomitant]
  16. ISOSORBIDE DINITRATE [Concomitant]

REACTIONS (4)
  - ARRHYTHMIA [None]
  - DYSPNOEA [None]
  - FOAMING AT MOUTH [None]
  - PULMONARY OEDEMA [None]
